FAERS Safety Report 7929187-0 (Version None)
Quarter: 2011Q4

REPORT INFORMATION
  Report Type: 
  Country: None (occurrence: None)
  Receive Date: 20111120
  Receipt Date: 20111107
  Transmission Date: 20120403
  Serious: Yes (Other)
  Sender: FDA-Public Use
  Company Number: FR-ELI_LILLY_AND_COMPANY-FR201111002242

PATIENT
  Age: 48 Year
  Sex: Female

DRUGS (4)
  1. TRAMADOL HCL [Concomitant]
  2. NAPROXEN [Concomitant]
  3. FORTEO [Suspect]
     Indication: BONE DISORDER
     Dosage: 20 UG, QD
     Route: 058
     Dates: start: 20110501, end: 20111001
  4. CORTISONE ACETATE [Concomitant]
     Indication: SPONDYLITIS

REACTIONS (4)
  - INCORRECT STORAGE OF DRUG [None]
  - RENAL IMPAIRMENT [None]
  - FOOT FRACTURE [None]
  - OFF LABEL USE [None]
